FAERS Safety Report 9551389 (Version 1)
Quarter: 2013Q3

REPORT INFORMATION
  Report Type: Spontaneous
  Country: US (occurrence: None)
  Receive Date: 20130724
  Receipt Date: 20130724
  Transmission Date: 20140515
  Serious: Yes (Hospitalization)
  Sender: FDA-Public Use
  Company Number: PHEH2013US007448

PATIENT
  Age: 27 Year
  Sex: Female

DRUGS (11)
  1. AFINITOR [Suspect]
     Indication: TUBEROUS SCLEROSIS
     Route: 048
  2. PROMETHAZINE (PROMETHAZINE) [Concomitant]
  3. MYCOPHENOLATE (MYCOPHENOLATE MOFETIL) (500 MILLIGRAM, UNKNOWN) [Concomitant]
  4. GABAPENTIN (GABAPENTIN) [Concomitant]
  5. BENADRYLDIPHENYDRAMINE HYDROCHLORIDE (DIPHENHYDRAMINE HYDROCHLORIDE) [Concomitant]
  6. NEURONTIN (GABAPENTIN) [Concomitant]
  7. PROGRAS (SIMETICONE) [Concomitant]
  8. TRICODEINE (CODEINE PHSOPHATE) [Concomitant]
  9. COMPAZINE (PROCHLORPERAZINE EDISYLATE) [Concomitant]
  10. PREDNISONE (PREDNISONE) [Concomitant]
  11. ONDANSETRON (ONDANSETRON) [Concomitant]

REACTIONS (1)
  - Kidney infection [None]
